FAERS Safety Report 7543038-8 (Version None)
Quarter: 2011Q2

REPORT INFORMATION
  Report Type: 
  Country: None (occurrence: None)
  Receive Date: 20110613
  Receipt Date: 20110608
  Transmission Date: 20111010
  Serious: Yes (Other)
  Sender: FDA-Public Use
  Company Number: US-PFIZER INC-2011125351

PATIENT
  Sex: Female
  Weight: 40.816 kg

DRUGS (10)
  1. LYRICA [Suspect]
     Indication: FIBROMYALGIA
     Dosage: 75 MG ONCE A DAY
     Route: 048
     Dates: start: 20110201
  2. LYRICA [Suspect]
     Indication: PAIN
  3. DIAZEPAM [Concomitant]
     Indication: MUSCLE SPASMS
     Dosage: 5 MG, AS NEEDED
  4. SUMATRIPTAN [Concomitant]
     Indication: MIGRAINE
     Dosage: AS NEEDED
  5. LYRICA [Suspect]
     Indication: PAIN IN EXTREMITY
  6. OXYCODONE [Concomitant]
     Indication: PAIN
     Dosage: AS NEEDED
  7. IBUPROFEN [Concomitant]
     Indication: PAIN
     Dosage: 400 MG, AS NEEDED
  8. ONDANSETRON [Concomitant]
     Indication: NAUSEA
     Dosage: 4 MG, AS NEEDED
  9. OMEPRAZOLE [Concomitant]
     Indication: LIVER DISORDER
  10. OMEPRAZOLE [Concomitant]
     Indication: GASTRIC DISORDER
     Dosage: AS NEEDED

REACTIONS (2)
  - WEIGHT DECREASED [None]
  - AMNESIA [None]
